FAERS Safety Report 23957313 (Version 1)
Quarter: 2024Q2

REPORT INFORMATION
  Report Type: Spontaneous
  Country: GB (occurrence: GB)
  Receive Date: 20240610
  Receipt Date: 20240610
  Transmission Date: 20240716
  Serious: Yes (Other)
  Sender: FDA-Public Use
  Company Number: GB-SEPTODONT-2024018683

PATIENT
  Age: 34 Year
  Sex: Female

DRUGS (2)
  1. ARTICAINE HYDROCHLORIDE\EPINEPHRINE HYDROCHLORIDE [Suspect]
     Active Substance: ARTICAINE HYDROCHLORIDE\EPINEPHRINE HYDROCHLORIDE
     Indication: Dental local anaesthesia
     Dosage: 2.2 ML 1 CARTRIDGE.
     Route: 004
     Dates: start: 20240425, end: 20240425
  2. Unodent Sterile Disposable Needle, 27GS (0.4 x 25mm) [Concomitant]
     Dates: start: 20240425, end: 20240425

REACTIONS (2)
  - Contusion [Recovered/Resolved]
  - Haemorrhage [Recovered/Resolved]

NARRATIVE: CASE EVENT DATE: 20240426
